FAERS Safety Report 21394732 (Version 1)
Quarter: 2022Q3

REPORT INFORMATION
  Report Type: Spontaneous
  Country: US (occurrence: US)
  Receive Date: 20220930
  Receipt Date: 20220930
  Transmission Date: 20221027
  Serious: Yes (Other)
  Sender: FDA-Public Use
  Company Number: US-009507513-2209USA009562

PATIENT
  Sex: Female

DRUGS (3)
  1. KEYTRUDA [Suspect]
     Active Substance: PEMBROLIZUMAB
     Dosage: UNK
     Dates: start: 20220902
  2. LENVATINIB MESYLATE [Suspect]
     Active Substance: LENVATINIB MESYLATE
     Dosage: UNK
     Dates: start: 20220902
  3. ALEVE [Suspect]
     Active Substance: NAPROXEN SODIUM

REACTIONS (6)
  - Haemorrhage [Unknown]
  - Pain in extremity [Unknown]
  - Dyspnoea [Unknown]
  - Electric shock sensation [Unknown]
  - Bleeding time prolonged [Unknown]
  - Skin laceration [Unknown]

NARRATIVE: CASE EVENT DATE: 20220901
